FAERS Safety Report 5778112-X (Version None)
Quarter: 2008Q2

REPORT INFORMATION
  Report Type: 
  Country: None (occurrence: None)
  Receive Date: 20080617
  Receipt Date: 20080617
  Transmission Date: 20081010
  Serious: Yes (Hospitalization)
  Sender: FDA-Public Use
  Company Number: None

PATIENT
  Age: 27 Year
  Sex: Male
  Weight: 96.4 kg

DRUGS (2)
  1. ACYCLOVIR [Suspect]
     Indication: MENINGITIS
     Dosage: 1000MG Q8H IV
     Route: 042
     Dates: start: 20080518, end: 20080526
  2. VANCOMYCIN [Suspect]
     Indication: MENINGITIS
     Dosage: 1750MG Q12H IV
     Route: 042
     Dates: start: 20080519, end: 20080526

REACTIONS (2)
  - DIALYSIS [None]
  - RENAL FAILURE [None]
